FAERS Safety Report 5297297-5 (Version None)
Quarter: 2007Q2

REPORT INFORMATION
  Report Type: 
  Country: None (occurrence: None)
  Receive Date: 20070409
  Receipt Date: 20070328
  Transmission Date: 20071010
  Serious: Yes (Death, Congenital Anomaly)
  Sender: FDA-Public Use
  Company Number: MEDI-0005251

PATIENT
  Age: 10 Month
  Sex: Female
  Weight: 7.5 kg

DRUGS (4)
  1. SYNAGIS [Suspect]
     Dosage: 113 MG, 1 IN 1 M, INTRAMUSCULAR
     Route: 030
     Dates: start: 20061018, end: 20061018
  2. SYNAGIS [Suspect]
  3. PHENOBARBITAL TAB [Concomitant]
  4. DIAMOX [Concomitant]

REACTIONS (1)
  - DEATH [None]
